FAERS Safety Report 4719784-8 (Version None)
Quarter: 2005Q3

REPORT INFORMATION
  Report Type: 
  Country: None (occurrence: None)
  Receive Date: 20050721
  Receipt Date: 20041102
  Transmission Date: 20060218
  Serious: No
  Sender: FDA-Public Use
  Company Number: US-GLAXOSMITHKLINE-A0532182A

PATIENT
  Age: 61 Year
  Sex: Male
  Weight: 136.4 kg

DRUGS (4)
  1. AVANDIA [Suspect]
     Dosage: 5MG TWICE PER DAY
     Route: 048
     Dates: start: 20030101
  2. INSULIN [Suspect]
     Route: 062
  3. LANTUS [Concomitant]
     Indication: DRUG USE FOR UNKNOWN INDICATION
  4. ACCUPRIL [Concomitant]
     Indication: DRUG USE FOR UNKNOWN INDICATION

REACTIONS (3)
  - DIZZINESS [None]
  - OEDEMA PERIPHERAL [None]
  - WEIGHT INCREASED [None]
